FAERS Safety Report 4374679-7 (Version None)
Quarter: 2004Q2

REPORT INFORMATION
  Report Type: 
  Country: None (occurrence: None)
  Receive Date: 20040604
  Receipt Date: 20040524
  Transmission Date: 20050107
  Serious: Yes (Other)
  Sender: FDA-Public Use
  Company Number: 2004035030

PATIENT
  Age: 71 Year
  Sex: Female
  Weight: 70.7611 kg

DRUGS (11)
  1. ZOLOFT [Suspect]
     Indication: ANXIETY
     Dosage: (50 MG, 1 IN 1 D), ORAL
     Route: 048
     Dates: start: 20030101
  2. ATORVASTATIN (ATORVASTATIN) [Concomitant]
  3. METOPROLOL SUCCINATE [Concomitant]
  4. RABEPRAZOLE SODIUM (RABEPRAZOLE SODIUM) [Concomitant]
  5. EPROSARTAN (EPROSARTAN) [Concomitant]
  6. RANITIDINE HYDROCHLORIDE [Concomitant]
  7. FENOFIBRATE [Concomitant]
  8. MULTIVITAMINS (ASCORBIC ACID, ERGOCALCIFEROL, FOLIC ACID, NICOTINAMIDE [Concomitant]
  9. ACETYLSALICYLIC ACID SRT [Concomitant]
  10. CALCIUM (CALCIUM) [Concomitant]
  11. DYAZIDE [Concomitant]

REACTIONS (5)
  - ANAL DISCOMFORT [None]
  - ANORECTAL DISORDER [None]
  - BENIGN COLONIC POLYP [None]
  - BLOOD HOMOCYSTEINE INCREASED [None]
  - PRURITUS [None]
